FAERS Safety Report 9741331 (Version 2)
Quarter: 2013Q4

REPORT INFORMATION
  Report Type: Spontaneous
  Country: US (occurrence: US)
  Receive Date: 20131209
  Receipt Date: 20131210
  Transmission Date: 20140711
  Serious: Yes (Other)
  Sender: FDA-Public Use
  Company Number: US-PFIZER INC-2013349383

PATIENT
  Age: 57 Year
  Sex: Female
  Weight: 65.76 kg

DRUGS (7)
  1. CHANTIX [Suspect]
     Indication: SMOKING CESSATION THERAPY
     Dosage: 0.5 MG, 1X/DAY
     Route: 048
     Dates: start: 2010, end: 2010
  2. VICTRELIS [Suspect]
     Indication: HEPATITIS C
     Dosage: UNK
  3. VITAMIN D [Concomitant]
     Indication: BONE DENSITY ABNORMAL
     Dosage: UNK
  4. CALCIUM [Concomitant]
     Indication: BONE DENSITY ABNORMAL
     Dosage: UNK
  5. TAMOXIFEN [Concomitant]
     Indication: BREAST CANCER
     Dosage: UNK
  6. FENTANYL [Concomitant]
     Indication: PAIN
     Dosage: UNK
  7. LORAZEPAM [Concomitant]
     Dosage: UNK

REACTIONS (6)
  - Hepatitis C [Unknown]
  - Chronic obstructive pulmonary disease [Unknown]
  - Malaise [Unknown]
  - Bronchitis [Unknown]
  - Pruritus generalised [Unknown]
  - Pruritus [Unknown]
